FAERS Safety Report 6743681-X (Version None)
Quarter: 2010Q2

REPORT INFORMATION
  Report Type: 
  Country: None (occurrence: None)
  Receive Date: 20100526
  Receipt Date: 20100526
  Transmission Date: 20101027
  Serious: No
  Sender: FDA-Public Use
  Company Number: None

PATIENT
  Age: 77 Year
  Sex: Female
  Weight: 67.586 kg

DRUGS (1)
  1. WARFARIN SODIUM [Suspect]
     Dosage: 5MG QD ORAL
     Route: 048
     Dates: start: 20060101, end: 20091101

REACTIONS (2)
  - PRURITUS [None]
  - RASH [None]
